FAERS Safety Report 9333558 (Version 1)
Quarter: 2013Q2

REPORT INFORMATION
  Report Type: Spontaneous
  Country: US (occurrence: US)
  Receive Date: 20130606
  Receipt Date: 20130606
  Transmission Date: 20140414
  Serious: No
  Sender: FDA-Public Use
  Company Number: US-PFIZER INC-2013169368

PATIENT
  Age: 64 Year
  Sex: Female

DRUGS (4)
  1. METHOTREXATE SODIUM [Suspect]
     Dosage: 25 MG ONCE A WEEK
     Route: 030
     Dates: start: 201304
  2. METHOTREXATE SODIUM [Suspect]
     Dosage: 25 MG ONCE A WEEK
     Route: 058
  3. FOLIC ACID [Concomitant]
     Dosage: UNK
  4. AMLODIPINE [Concomitant]
     Dosage: UNK

REACTIONS (2)
  - Malaise [Unknown]
  - Off label use [Unknown]
